FAERS Safety Report 8215067-2 (Version None)
Quarter: 2012Q1

REPORT INFORMATION
  Report Type: 
  Country: None (occurrence: None)
  Receive Date: 20120316
  Receipt Date: 20120308
  Transmission Date: 20120608
  Serious: Yes (Hospitalization)
  Sender: FDA-Public Use
  Company Number: JP-EISAI INC-E7389-01924-CLI-JP

PATIENT
  Sex: Female
  Weight: 50 kg

DRUGS (9)
  1. HALAVEN [Suspect]
     Indication: METASTASES TO LIVER
  2. ACTONEL [Concomitant]
     Indication: PROPHYLAXIS
     Route: 048
  3. HALAVEN [Suspect]
     Indication: BREAST CANCER RECURRENT
     Route: 041
     Dates: start: 20111107, end: 20111219
  4. EMEND [Concomitant]
     Indication: PROPHYLAXIS
     Route: 048
  5. OXYCONTIN [Concomitant]
     Route: 048
  6. FAMOTIDINE [Concomitant]
     Indication: PROPHYLAXIS
     Route: 048
  7. HALAVEN [Suspect]
     Indication: METASTASES TO LUNG
     Route: 041
     Dates: start: 20111017, end: 20110101
  8. MUCOSTA [Concomitant]
     Indication: PROPHYLAXIS
     Route: 048
  9. PURSENNID [Concomitant]
     Route: 048

REACTIONS (1)
  - INTERSTITIAL LUNG DISEASE [None]
